FAERS Safety Report 4783907-5 (Version None)
Quarter: 2005Q3

REPORT INFORMATION
  Report Type: 
  Country: None (occurrence: None)
  Receive Date: 20050929
  Receipt Date: 20050919
  Transmission Date: 20060218
  Serious: Yes (Death, Hospitalization)
  Sender: FDA-Public Use
  Company Number: US-MERCK-0509USA02632

PATIENT
  Age: 65 Year
  Sex: Male
  Weight: 110 kg

DRUGS (8)
  1. VIOXX [Suspect]
     Indication: ARTHRITIS
     Route: 048
     Dates: start: 19990901
  2. VIOXX [Suspect]
     Route: 048
     Dates: start: 20000801, end: 20040601
  3. VIOXX [Suspect]
     Indication: OSTEOARTHRITIS
     Route: 048
     Dates: start: 19990901
  4. VIOXX [Suspect]
     Route: 048
     Dates: start: 20000801, end: 20040601
  5. TRIAMTERENE [Concomitant]
     Route: 065
  6. PROCTOFOAM [Concomitant]
     Route: 065
  7. HYLAN G-F 20 [Concomitant]
     Route: 065
  8. PROPOXYPHENE NAPSYLATE [Concomitant]
     Route: 065

REACTIONS (26)
  - ACROCHORDON [None]
  - ACUTE MYOCARDIAL INFARCTION [None]
  - BACK PAIN [None]
  - BENIGN PROSTATIC HYPERPLASIA [None]
  - BLOOD CHLORIDE DECREASED [None]
  - BLOOD CREATININE INCREASED [None]
  - BLOOD PRESSURE INCREASED [None]
  - BLOOD SODIUM DECREASED [None]
  - CELLULITIS [None]
  - CORONARY ARTERY DISEASE [None]
  - DYSPNOEA EXERTIONAL [None]
  - GASTRIC DISORDER [None]
  - GASTROOESOPHAGEAL REFLUX DISEASE [None]
  - HAEMATOCHEZIA [None]
  - HAEMORRHOIDS [None]
  - HIATUS HERNIA [None]
  - HYPERLIPIDAEMIA [None]
  - NEOPLASM [None]
  - NEPHROLITHIASIS [None]
  - NERVE COMPRESSION [None]
  - OEDEMA PERIPHERAL [None]
  - OSTEOARTHRITIS [None]
  - PULMONARY EMBOLISM [None]
  - REFLUX OESOPHAGITIS [None]
  - VISION BLURRED [None]
  - WOUND DEHISCENCE [None]
